FAERS Safety Report 7892548-2 (Version None)
Quarter: 2011Q4

REPORT INFORMATION
  Report Type: 
  Country: None (occurrence: None)
  Receive Date: 20111104
  Receipt Date: 20111028
  Transmission Date: 20120403
  Serious: Yes (Life-Threatening, Hospitalization)
  Sender: FDA-Public Use
  Company Number: GB-JNJFOC-20111012716

PATIENT
  Age: 64 Year
  Sex: Female
  Weight: 100 kg

DRUGS (5)
  1. FENTANYL [Suspect]
     Indication: PAIN IN EXTREMITY
     Route: 062
     Dates: start: 20110615
  2. GABAPENTIN [Interacting]
     Indication: PAIN
     Route: 065
     Dates: start: 20110601
  3. GABAPENTIN [Interacting]
     Route: 065
  4. GABAPENTIN [Interacting]
     Route: 065
  5. GABAPENTIN [Interacting]
     Route: 065
     Dates: start: 20110104, end: 20110601

REACTIONS (2)
  - RESPIRATORY ARREST [None]
  - DRUG INTERACTION [None]
